FAERS Safety Report 5022587-0 (Version None)
Quarter: 2006Q2

REPORT INFORMATION
  Report Type: 
  Country: None (occurrence: None)
  Receive Date: 20060605
  Receipt Date: 20060517
  Transmission Date: 20061013
  Serious: Yes (Other)
  Sender: FDA-Public Use
  Company Number: JP_051007906

PATIENT
  Age: 36 Year
  Sex: Male

DRUGS (6)
  1. ZYPREXA [Suspect]
     Indication: SCHIZOPHRENIA
     Dosage: 5 + 10 + 15 + 20MG, DAILY (1/D), ORAL
     Route: 048
     Dates: start: 20030930, end: 20031003
  2. ZYPREXA [Suspect]
     Indication: SCHIZOPHRENIA
     Dosage: 5 + 10 + 15 + 20MG, DAILY (1/D), ORAL
     Route: 048
     Dates: start: 20031004, end: 20031006
  3. ZYPREXA [Suspect]
     Indication: SCHIZOPHRENIA
     Dosage: 5 + 10 + 15 + 20MG, DAILY (1/D), ORAL
     Route: 048
     Dates: start: 20031007, end: 20031013
  4. ZYPREXA [Suspect]
     Indication: SCHIZOPHRENIA
     Dosage: 5 + 10 + 15 + 20MG, DAILY (1/D), ORAL
     Route: 048
     Dates: start: 20031014, end: 20031203
  5. ZYPREXA [Suspect]
     Indication: SCHIZOPHRENIA
     Dosage: 5 + 10 + 15 + 20MG, DAILY (1/D), ORAL
     Route: 048
     Dates: start: 20031204, end: 20031217
  6. ZYPREXA [Suspect]
     Indication: SCHIZOPHRENIA
     Dosage: 5 + 10 + 15 + 20MG, DAILY (1/D), ORAL
     Route: 048
     Dates: start: 20031218, end: 20040222

REACTIONS (3)
  - DISEASE RECURRENCE [None]
  - HYPOTHYROIDISM [None]
  - TOURETTE'S DISORDER [None]
